FAERS Safety Report 9418300 (Version 1)
Quarter: 2013Q3

REPORT INFORMATION
  Report Type: Spontaneous
  Country: US (occurrence: US)
  Receive Date: 20130725
  Receipt Date: 20130725
  Transmission Date: 20140515
  Serious: Yes (Disabling)
  Sender: FDA-Public Use
  Company Number: US-AMGEN-USASP2013050828

PATIENT
  Age: 31 Year
  Sex: Female
  Weight: 47.62 kg

DRUGS (1)
  1. XGEVA [Suspect]
     Indication: BONE DISORDER
     Dosage: UNK UNK, Q4WK
     Dates: start: 201205, end: 201210

REACTIONS (4)
  - Influenza [Recovered/Resolved]
  - Bone pain [Recovered/Resolved]
  - Somnolence [Unknown]
  - Fatigue [Unknown]
